FAERS Safety Report 9837804 (Version 1)
Quarter: 2013Q4

REPORT INFORMATION
  Report Type: Spontaneous
  Country: US (occurrence: None)
  Receive Date: 20131205
  Receipt Date: 20131205
  Transmission Date: 20140711
  Serious: No
  Sender: FDA-Public Use
  Company Number: 163-POMAL-13074211

PATIENT
  Age: 80 Year
  Sex: Male
  Weight: 71.2 kg

DRUGS (17)
  1. POMALYST(POMALIDOMIDE)(2 MILLIGRAM, CAPSULES) [Suspect]
     Indication: PLASMA CELL MYELOMA
     Dosage: 2 MG, 21 IN 21 D, PO
     Route: 048
     Dates: start: 20130624
  2. NITROSTAT(GLYCERYLTRINTRATE)(TABLETS) [Concomitant]
  3. LEVOFLOXACIN(LEVOFLOXACIN)(TABLETS) [Concomitant]
  4. ISOSORBIDE(ISOSORBIDE) [Concomitant]
  5. OXYCONTIN(OXYCODONE HYDROCHLORIDE) [Concomitant]
  6. ZOCOR(SIMVASTATIN)(TABLETS) [Concomitant]
  7. DEXAMETHASONE(DEXAMETHASONE) [Concomitant]
  8. IMDUR(ISOSORBIDE MONONITRATE) [Concomitant]
  9. ALBUTEROL(SALBUTAMOL)(INHALANT) [Concomitant]
  10. ACYCLOVIR(ACICLOVIR) [Concomitant]
  11. LISINOPRIL(LISINOPRIL) [Concomitant]
  12. ASPIRIN(ACETYLSALICYLIC ACID) [Concomitant]
  13. VITAMIN B12(CYANOCOBALAMIN) [Concomitant]
  14. VITAMIN D (ERGOCALCIFEROL) [Concomitant]
  15. VITAMIN B1(THIAMINE HYDRHLORIDE) [Concomitant]
  16. PERCOCET(OXYCOCET) [Concomitant]
  17. LOPRESSOR(METOPROLOL TARTRATE) [Concomitant]

REACTIONS (9)
  - Hypotension [None]
  - Fall [None]
  - Head injury [None]
  - Pruritus [None]
  - Dizziness [None]
  - Red blood cell count decreased [None]
  - White blood cell count decreased [None]
  - Fatigue [None]
  - Light chain analysis [None]
